FAERS Safety Report 23467056 (Version 1)
Quarter: 2024Q1

REPORT INFORMATION
  Report Type: Spontaneous
  Country: US (occurrence: None)
  Receive Date: 20240131
  Receipt Date: 20240131
  Transmission Date: 20240410
  Serious: Yes (Other)
  Sender: FDA-Public Use
  Company Number: None

PATIENT
  Age: 78 Year
  Sex: Male

DRUGS (1)
  1. TAVNEOS [Suspect]
     Active Substance: AVACOPAN

REACTIONS (4)
  - Swelling face [None]
  - Eye swelling [None]
  - Swelling face [None]
  - Skin discolouration [None]

NARRATIVE: CASE EVENT DATE: 20240131
